FAERS Safety Report 16463013 (Version 5)
Quarter: 2021Q1

REPORT INFORMATION
  Report Type: Spontaneous
  Country: IT (occurrence: IT)
  Receive Date: 20190621
  Receipt Date: 20210218
  Transmission Date: 20210419
  Serious: Yes (Death, Hospitalization, Other)
  Sender: FDA-Public Use
  Company Number: IT-SA-2019SA169230

PATIENT
  Age: 39 Year
  Sex: Female

DRUGS (12)
  1. CLARITHROMYCIN. [Concomitant]
     Active Substance: CLARITHROMYCIN
     Dosage: UNK UNK, UNK
     Route: 065
  2. OMEPRAZOLE. [Concomitant]
     Active Substance: OMEPRAZOLE
     Dosage: UNK UNK, UNK
     Route: 065
  3. MEROPENEM. [Concomitant]
     Active Substance: MEROPENEM
     Dosage: UNK UNK, UNK
     Route: 065
  4. ALEMTUZUMAB [Suspect]
     Active Substance: ALEMTUZUMAB
     Indication: MULTIPLE SCLEROSIS
     Dosage: UNK
     Route: 042
     Dates: start: 20160901
  5. FLUCONAZOLE. [Concomitant]
     Active Substance: FLUCONAZOLE
     Dosage: UNK UNK, UNK
     Route: 065
  6. TEICOPLANIN [Concomitant]
     Active Substance: TEICOPLANIN
     Dosage: UNK UNK, UNK
     Route: 065
  7. CEFTAZIDIME. [Concomitant]
     Active Substance: CEFTAZIDIME
     Dosage: UNK UNK, UNK
     Route: 065
  8. ALBUMIN [Concomitant]
     Active Substance: ALBUMIN HUMAN
     Dosage: UNK UNK, UNK
     Route: 065
  9. OMEGA3+ JOY [Concomitant]
     Dosage: UNK UNK, UNK
     Route: 065
  10. ALEMTUZUMAB [Suspect]
     Active Substance: ALEMTUZUMAB
     Dosage: UNK
     Route: 042
     Dates: start: 201710, end: 20171101
  11. RAMIPRIL. [Concomitant]
     Active Substance: RAMIPRIL
     Dosage: UNK UNK, UNK
     Route: 065
  12. CIPROFLOXACIN. [Concomitant]
     Active Substance: CIPROFLOXACIN
     Dosage: UNK UNK, UNK
     Route: 065

REACTIONS (62)
  - Chest pain [Fatal]
  - Pyrexia [Fatal]
  - C-reactive protein increased [Fatal]
  - Respiratory failure [Unknown]
  - Pyrexia [Unknown]
  - Mean cell volume decreased [Unknown]
  - Blood sodium decreased [Unknown]
  - Urine abnormality [Unknown]
  - Dyspnoea [Unknown]
  - Blood glucose increased [Unknown]
  - Nausea [Fatal]
  - Blood triglycerides increased [Fatal]
  - Lymphadenopathy [Fatal]
  - Azotaemia [Unknown]
  - Biopsy lymph gland abnormal [Unknown]
  - Asthenia [Unknown]
  - Blood creatine phosphokinase decreased [Unknown]
  - Blood albumin decreased [Unknown]
  - Blood thyroid stimulating hormone decreased [Unknown]
  - Blood bilirubin increased [Unknown]
  - Serum ferritin increased [Fatal]
  - Lymphoproliferative disorder [Unknown]
  - Abdominal pain [Unknown]
  - Vomiting [Fatal]
  - Pyrexia [Fatal]
  - Blood fibrinogen increased [Fatal]
  - Haemolysis [Fatal]
  - Haemoglobin decreased [Fatal]
  - Ascites [Fatal]
  - Asthenia [Fatal]
  - Multiple sclerosis relapse [Unknown]
  - Neutrophil count increased [Unknown]
  - Neutrophil percentage increased [Unknown]
  - Movement disorder [Unknown]
  - B-lymphocyte count abnormal [Unknown]
  - Unevaluable event [Unknown]
  - Pulmonary mass [Unknown]
  - Biopsy bone marrow [Unknown]
  - White blood cell count increased [Unknown]
  - Lymphocyte percentage decreased [Unknown]
  - Blood lactate dehydrogenase increased [Unknown]
  - Thyroxin binding globulin decreased [Unknown]
  - Drug monitoring procedure not performed [Unknown]
  - Hepatosplenomegaly [Fatal]
  - Multiple organ dysfunction syndrome [Unknown]
  - Fatigue [Unknown]
  - Tri-iodothyronine free decreased [Unknown]
  - Thyroxine free decreased [Unknown]
  - Thrombocytopenia [Fatal]
  - Coombs direct test [Unknown]
  - Serum ferritin increased [Unknown]
  - Mean cell haemoglobin decreased [Unknown]
  - Blood calcium decreased [Unknown]
  - Haemophagocytic lymphohistiocytosis [Fatal]
  - Autoimmune haemolytic anaemia [Fatal]
  - Loss of consciousness [Unknown]
  - Visual impairment [Unknown]
  - Balance disorder [Unknown]
  - Anaemia [Unknown]
  - Epstein-Barr virus infection [Unknown]
  - Blood cholinesterase decreased [Unknown]
  - Platelet count decreased [Unknown]

NARRATIVE: CASE EVENT DATE: 201806
